FAERS Safety Report 6672776-4 (Version None)
Quarter: 2010Q2

REPORT INFORMATION
  Report Type: 
  Country: None (occurrence: None)
  Receive Date: 20100408
  Receipt Date: 20100402
  Transmission Date: 20101027
  Serious: Yes (Death, Other)
  Sender: FDA-Public Use
  Company Number: JP-BAYER-200914682BYL

PATIENT
  Age: 78 Year
  Sex: Male
  Weight: 56 kg

DRUGS (7)
  1. NEXAVAR [Suspect]
     Indication: HEPATIC NEOPLASM MALIGNANT
     Dosage: UNIT DOSE: 200 MG
     Route: 048
     Dates: start: 20091113, end: 20091123
  2. BASEN OD [Suspect]
     Indication: DRUG USE FOR UNKNOWN INDICATION
     Dosage: UNIT DOSE: 0.2 MG
     Route: 048
  3. GLIMICRON [Suspect]
     Indication: DRUG USE FOR UNKNOWN INDICATION
     Dosage: UNIT DOSE: 40 MG
     Route: 048
  4. PARIET [Concomitant]
     Dosage: UNIT DOSE: 10 MG
     Route: 048
  5. MUCOSTA [Concomitant]
     Dosage: UNIT DOSE: 100 MG
     Route: 048
  6. RENIVACE [Concomitant]
     Dosage: UNIT DOSE: 5 MG
     Route: 048
  7. LENDORMIN [Concomitant]
     Route: 048

REACTIONS (3)
  - HEPATIC NEOPLASM MALIGNANT [None]
  - HYPOGLYCAEMIA [None]
  - PSEUDOMEMBRANOUS COLITIS [None]
